FAERS Safety Report 7629870-0 (Version None)
Quarter: 2011Q3

REPORT INFORMATION
  Report Type: 
  Country: None (occurrence: None)
  Receive Date: 20110722
  Receipt Date: 20110721
  Transmission Date: 20111222
  Serious: Yes (Hospitalization)
  Sender: FDA-Public Use
  Company Number: US-PFIZER INC-2011166152

PATIENT
  Sex: Male
  Weight: 111 kg

DRUGS (12)
  1. LOPRESSOR [Concomitant]
     Indication: CORONARY ARTERY DISEASE
     Dosage: 50 MG, 3X/DAY
     Route: 048
  2. SPIRIVA [Concomitant]
     Indication: CHRONIC OBSTRUCTIVE PULMONARY DISEASE
     Dosage: UNK
  3. TEGRETOL [Concomitant]
     Indication: GRAND MAL CONVULSION
     Dosage: UNK
     Dates: end: 20110101
  4. PHENOBARBITAL TAB [Concomitant]
     Indication: GRAND MAL CONVULSION
     Dosage: 97.2 MG, 4X/DAY
     Route: 048
  5. LYRICA [Concomitant]
     Indication: GRAND MAL CONVULSION
     Dosage: 100 MG, 3X/DAY
     Route: 048
  6. NITROGLYCERIN [Concomitant]
     Indication: ANGINA PECTORIS
     Dosage: 0.4 MG, AS NEEDED
     Route: 048
  7. CHANTIX [Suspect]
     Indication: SMOKING CESSATION THERAPY
     Dosage: 0.5 MG, 1X/DAY
     Route: 048
     Dates: start: 20101201, end: 20110101
  8. VERAPAMIL [Concomitant]
     Indication: CORONARY ARTERY DISEASE
     Dosage: 250 MG, 1X/DAY
     Route: 048
  9. AGGRENOX [Concomitant]
     Indication: CORONARY ARTERY DISEASE
     Dosage: UNK
  10. DUONEB [Concomitant]
     Indication: CHRONIC OBSTRUCTIVE PULMONARY DISEASE
     Dosage: UNK
  11. ADVAIR DISKUS 100/50 [Concomitant]
     Indication: CHRONIC OBSTRUCTIVE PULMONARY DISEASE
     Dosage: 550 UG, 2X/DAY
     Route: 045
  12. KLONOPIN [Concomitant]
     Indication: PETIT MAL EPILEPSY
     Dosage: 2 MG, 4X/DAY
     Route: 048

REACTIONS (1)
  - CONVULSIVE THRESHOLD LOWERED [None]
